FAERS Safety Report 24368342 (Version 5)
Quarter: 2025Q3

REPORT INFORMATION
  Report Type: Spontaneous
  Country: US (occurrence: US)
  Receive Date: 20240926
  Receipt Date: 20250716
  Transmission Date: 20251020
  Serious: Yes (Other)
  Sender: SANOFI AVENTIS
  Company Number: US-SANOFI-02224363

PATIENT
  Age: 74 Year
  Sex: Female
  Weight: 90.91 kg

DRUGS (21)
  1. DUPIXENT [Suspect]
     Active Substance: DUPILUMAB
     Indication: Asthma
     Dosage: 300 MG, QOW
     Route: 058
  2. DUPIXENT [Suspect]
     Active Substance: DUPILUMAB
     Indication: Asthma
     Dosage: 300 MG, QOW
     Route: 058
  3. OPSUMIT [Suspect]
     Active Substance: MACITENTAN
     Dates: start: 202502, end: 202503
  4. UPTRAVI [Suspect]
     Active Substance: SELEXIPAG
  5. ALBUTEROL SULFATE [Concomitant]
     Active Substance: ALBUTEROL SULFATE
  6. SYMBICORT [Concomitant]
     Active Substance: BUDESONIDE\FORMOTEROL FUMARATE DIHYDRATE
  7. QVAR REDIHALER [Concomitant]
     Active Substance: BECLOMETHASONE DIPROPIONATE
  8. SPIRONOLACTONE [Concomitant]
     Active Substance: SPIRONOLACTONE
  9. JARDIANCE [Concomitant]
     Active Substance: EMPAGLIFLOZIN
  10. CARVEDILOL [Concomitant]
     Active Substance: CARVEDILOL
  11. NP THYROID [Concomitant]
     Active Substance: LEVOTHYROXINE\LIOTHYRONINE
  12. GABAPENTIN [Concomitant]
     Active Substance: GABAPENTIN
  13. TYLENOL [Concomitant]
     Active Substance: ACETAMINOPHEN
  14. TRAMADOL HCL [Concomitant]
     Active Substance: TRAMADOL HYDROCHLORIDE
  15. ENTRESTO [Concomitant]
     Active Substance: SACUBITRIL\VALSARTAN
  16. ROSUVASTATIN CALCIUM [Concomitant]
     Active Substance: ROSUVASTATIN CALCIUM
  17. ASPIRIN [Concomitant]
     Active Substance: ASPIRIN
  18. AMLODIPINE BESYLATE [Concomitant]
     Active Substance: AMLODIPINE BESYLATE
  19. FUROSEMIDE [Concomitant]
     Active Substance: FUROSEMIDE
  20. TADALAFIL [Concomitant]
     Active Substance: TADALAFIL
  21. SPIRIVA [Concomitant]
     Active Substance: TIOTROPIUM BROMIDE MONOHYDRATE

REACTIONS (9)
  - Cardiac failure [Unknown]
  - COVID-19 [Unknown]
  - Malaise [Unknown]
  - Gastrointestinal disorder [Unknown]
  - Fatigue [Unknown]
  - Fluid retention [Unknown]
  - Paranasal sinus haemorrhage [Unknown]
  - Headache [Unknown]
  - Arthralgia [Unknown]

NARRATIVE: CASE EVENT DATE: 20250101
